FAERS Safety Report 17365574 (Version 3)
Quarter: 2020Q1

REPORT INFORMATION
  Report Type: Spontaneous
  Country: US (occurrence: US)
  Receive Date: 20200204
  Receipt Date: 20200305
  Transmission Date: 20200409
  Serious: Yes (Other)
  Sender: FDA-Public Use
  Company Number: US-009507513-2001USA010102

PATIENT
  Age: 30 Year
  Sex: Female

DRUGS (1)
  1. NEXPLANON [Suspect]
     Active Substance: ETONOGESTREL
     Dosage: 1 IMPLANT EVERY 3 YEARS
     Route: 059
     Dates: start: 20190912, end: 20191224

REACTIONS (6)
  - Device dislocation [Recovered/Resolved]
  - Implant site pain [Unknown]
  - Implant site irritation [Unknown]
  - Pain in extremity [Recovered/Resolved]
  - Limb discomfort [Recovered/Resolved with Sequelae]
  - Paraesthesia [Recovered/Resolved]

NARRATIVE: CASE EVENT DATE: 2019
